FAERS Safety Report 9008534 (Version 2)
Quarter: 2013Q1

REPORT INFORMATION
  Report Type: Spontaneous
  Country: US (occurrence: US)
  Receive Date: 20130111
  Receipt Date: 20130227
  Transmission Date: 20140127
  Serious: No
  Sender: FDA-Public Use
  Company Number: PHEH2013US000952

PATIENT
  Age: 50 Year
  Sex: Female
  Weight: 89 kg

DRUGS (4)
  1. TASIGNA [Suspect]
     Indication: CHRONIC MYELOID LEUKAEMIA
     Dosage: 300 MG, BID
     Route: 048
     Dates: start: 20110214
  2. TASIGNA [Suspect]
     Dosage: 300 MG, BID
     Route: 048
     Dates: end: 20130111
  3. LEXAPRO [Concomitant]
     Dosage: 10 MG, QD
  4. SYNTHROID [Concomitant]
     Dosage: 100 UG, UNK

REACTIONS (7)
  - Burning sensation [Unknown]
  - Skin irritation [Unknown]
  - Rash [Not Recovered/Not Resolved]
  - Arthralgia [Unknown]
  - Myalgia [Unknown]
  - Fatigue [Unknown]
  - Insomnia [Recovering/Resolving]
